FAERS Safety Report 4638721-8 (Version None)
Quarter: 2005Q2

REPORT INFORMATION
  Report Type: 
  Country: None (occurrence: None)
  Receive Date: 20050418
  Receipt Date: 20050418
  Transmission Date: 20051028
  Serious: Yes (Other)
  Sender: FDA-Public Use
  Company Number: None

PATIENT
  Age: 30 Year
  Sex: Female

DRUGS (1)
  1. ULTRAM [Suspect]
     Dosage: 50MG PO QID PRN
     Route: 048
     Dates: start: 20050225, end: 20050307

REACTIONS (1)
  - HEADACHE [None]
